FAERS Safety Report 7044691-8 (Version None)
Quarter: 2010Q4

REPORT INFORMATION
  Report Type: 
  Country: None (occurrence: None)
  Receive Date: 20101014
  Receipt Date: 20101002
  Transmission Date: 20110411
  Serious: Yes (Death, Other)
  Sender: FDA-Public Use
  Company Number: CO-GENZYME-CLOF-1001250

PATIENT
  Sex: Male
  Weight: 19.2 kg

DRUGS (8)
  1. CLOLAR [Suspect]
     Indication: ACUTE LYMPHOCYTIC LEUKAEMIA
     Dosage: 40 MG/M2, QDX5
     Route: 042
     Dates: start: 20100108, end: 20100112
  2. CYCLOPHOSPHAMIDE [Suspect]
     Indication: ACUTE LYMPHOCYTIC LEUKAEMIA
     Dosage: 440 MG/M2, QDX5
     Route: 065
     Dates: start: 20100108, end: 20100112
  3. ETOPOSIDE [Suspect]
     Indication: ACUTE LYMPHOCYTIC LEUKAEMIA
     Dosage: 100 MG/M2, QDX5
     Route: 065
     Dates: start: 20100108, end: 20100112
  4. ALLOPURINOL [Concomitant]
     Indication: PRODUCT USED FOR UNKNOWN INDICATION
     Dosage: 50 MG, TID
     Route: 048
  5. METHYLPREDNISOLONE [Concomitant]
     Indication: PRODUCT USED FOR UNKNOWN INDICATION
     Dosage: 40 MG, QD
     Route: 042
  6. ONDANSETRON [Concomitant]
     Indication: PRODUCT USED FOR UNKNOWN INDICATION
     Dosage: 4 MG, DOSE OF CARGO
  7. ONDANSETRON [Concomitant]
     Dosage: 12 MG, QD
     Route: 042
  8. FLUCONAZOLE [Concomitant]
     Indication: PROPHYLAXIS

REACTIONS (2)
  - APLASTIC ANAEMIA [None]
  - MALIGNANT NEOPLASM PROGRESSION [None]
